FAERS Safety Report 8912313 (Version 3)
Quarter: 2014Q1

REPORT INFORMATION
  Report Type: Report from Study
  Country: JP (occurrence: JP)
  Receive Date: 20121116
  Receipt Date: 20140317
  Transmission Date: 20141002
  Serious: Yes (Other)
  Sender: FDA-Public Use
  Company Number: JP-VERTEX PHARMACEUTICAL INC.-2012-024601

PATIENT
  Age: 56 Year
  Sex: Male

DRUGS (14)
  1. VX-950 (TELAPREVIR) [Suspect]
     Indication: CHRONIC HEPATITIS C
     Dosage: 2250 MG, QD
     Route: 048
     Dates: start: 20120509, end: 20120801
  2. PEGINTRON [Suspect]
     Indication: CHRONIC HEPATITIS C
     Dosage: 1.5 ?G/KG, WEEK
     Route: 058
     Dates: start: 20120509, end: 20120516
  3. PEGINTRON [Suspect]
     Dosage: 0.75 ?G/KG, QW
     Route: 058
     Dates: start: 20120523, end: 20120606
  4. PEGINTRON [Suspect]
     Dosage: 1.5 ?G/KG, QW
     Route: 058
     Dates: start: 20120613, end: 20121024
  5. REBETOL [Suspect]
     Indication: CHRONIC HEPATITIS C
     Dosage: 800 MG, QD
     Route: 048
     Dates: start: 20120509, end: 20120626
  6. REBETOL [Suspect]
     Dosage: 600 MG, QD
     Route: 048
     Dates: start: 20120627, end: 20120926
  7. REBETOL [Suspect]
     Dosage: 800 MG, QD
     Route: 048
     Dates: start: 20120927, end: 20121024
  8. URSO [Concomitant]
     Dosage: 900 MG, QD
     Route: 048
     Dates: start: 20111221, end: 20130130
  9. GLYCYRON [Concomitant]
     Dosage: 3 DF, QD
     Route: 048
     Dates: start: 20120118, end: 20130130
  10. NORVASC [Concomitant]
     Dosage: 5 MG, QD
     Route: 048
     Dates: start: 20120229
  11. JUVELA [Concomitant]
     Dosage: 150 MG, QD
     Route: 048
     Dates: start: 20120229
  12. ALLEGRA [Concomitant]
     Dosage: 120 MG, QD
     Route: 048
  13. MUCOSTA [Concomitant]
     Dosage: 300 MG, QD
     Route: 048
  14. DERMOVATE [Concomitant]
     Dosage: UNK, BID
     Route: 051
     Dates: start: 20120916, end: 20121226

REACTIONS (1)
  - Neutrophil count decreased [Recovered/Resolved]
